FAERS Safety Report 17128512 (Version 1)
Quarter: 2019Q4

REPORT INFORMATION
  Report Type: Spontaneous
  Country: US (occurrence: US)
  Receive Date: 20191115
  Receipt Date: 20191115
  Transmission Date: 20200122
  Serious: Yes (Hospitalization)
  Sender: FDA-Public Use
  Company Number: None

PATIENT
  Age: 82 Year
  Sex: Male

DRUGS (22)
  1. DULCOLAX NOS [Concomitant]
     Active Substance: BISACODYL OR DOCUSATE SODIUM
  2. IRON SUPPLMT [Concomitant]
  3. PROLIA [Concomitant]
     Active Substance: DENOSUMAB
  4. ATENOLOL. [Concomitant]
     Active Substance: ATENOLOL
  5. METFORMIN [Concomitant]
     Active Substance: METFORMIN HYDROCHLORIDE
  6. VITAMIN D [Concomitant]
     Active Substance: VITAMIN D NOS
  7. HYOSCYAMINE. [Concomitant]
     Active Substance: HYOSCYAMINE
  8. IMODIUM [Concomitant]
     Active Substance: LOPERAMIDE HYDROCHLORIDE
  9. LUPRON [Concomitant]
     Active Substance: LEUPROLIDE ACETATE
  10. PRESERVISION [Concomitant]
     Active Substance: MINERALS\VITAMINS
  11. TOLTERODINE [Concomitant]
     Active Substance: TOLTERODINE
  12. VITAMIN B [Concomitant]
     Active Substance: VITAMIN B
  13. DIPHEN/ATROP [Concomitant]
     Active Substance: ATROPINE SULFATE\DIPHENOXYLATE
  14. RABEPRAZOLE [Concomitant]
     Active Substance: RABEPRAZOLE
  15. ABIRATERONE ACETATE 250MG [Suspect]
     Active Substance: ABIRATERONE ACETATE
     Indication: PROSTATE CANCER
     Route: 048
     Dates: start: 20191009
  16. ALLOPURINOL. [Concomitant]
     Active Substance: ALLOPURINOL
  17. GABAPENTIN. [Concomitant]
     Active Substance: GABAPENTIN
  18. IRBESARTAN. [Concomitant]
     Active Substance: IRBESARTAN
  19. TYLENOL [Suspect]
     Active Substance: ACETAMINOPHEN
  20. LACTASE [Concomitant]
     Active Substance: LACTASE
  21. ONDANSETRON [Concomitant]
     Active Substance: ONDANSETRON
  22. ROSUVASTATIN. [Concomitant]
     Active Substance: ROSUVASTATIN

REACTIONS (2)
  - Therapy cessation [None]
  - Bacterial infection [None]

NARRATIVE: CASE EVENT DATE: 20191104
